FAERS Safety Report 6297647-7 (Version None)
Quarter: 2009Q3

REPORT INFORMATION
  Report Type: 
  Country: None (occurrence: None)
  Receive Date: 20090805
  Receipt Date: 20090724
  Transmission Date: 20100115
  Serious: Yes (Other)
  Sender: FDA-Public Use
  Company Number: US-MYLANLABS-2009S1009350

PATIENT
  Age: 13 Year
  Sex: Male
  Weight: 39.92 kg

DRUGS (8)
  1. CLOZAPINE [Suspect]
     Indication: MOOD DISORDER DUE TO A GENERAL MEDICAL CONDITION
     Dosage: 50MG QAM, 25MG AT NOON, 50MG HS
     Dates: start: 20081001, end: 20090526
  2. CLOZAPINE [Suspect]
     Dates: start: 20090601
  3. TRILEPTAL [Concomitant]
     Dosage: 300MG QAM, 600MG AT 8PM
  4. SYNTHROID [Concomitant]
  5. ATENOLOL [Concomitant]
  6. TRAZODONE HCL [Concomitant]
     Indication: INSOMNIA
     Dosage: 50-100MG
  7. RITALIN [Concomitant]
     Dosage: 15MG QAM, NOON; 10MG AT 4PM
  8. NUTROPIN [Concomitant]
     Dosage: 2.6MG 6X/WEEK

REACTIONS (2)
  - GRANULOCYTOPENIA [None]
  - SINUS DISORDER [None]
